FAERS Safety Report 8603177-7 (Version None)
Quarter: 2012Q3

REPORT INFORMATION
  Report Type: 
  Country: None (occurrence: None)
  Receive Date: 20120817
  Receipt Date: 20120813
  Transmission Date: 20120928
  Serious: Yes (Death, Hospitalization)
  Sender: FDA-Public Use
  Company Number: IL-B.I. PHARMACEUTICALS,INC./RIDGEFIELD-2011-AP-00713RI

PATIENT
  Age: 66 Year
  Sex: Female
  Weight: 100 kg

DRUGS (7)
  1. PRADAXA [Suspect]
     Indication: CARDIAC VALVE DISEASE
     Dosage: 300 MG
     Dates: start: 20111101, end: 20111208
  2. DIGOXIN [Concomitant]
     Route: 048
  3. ALDOSPIRON [Concomitant]
     Route: 048
  4. LIPITOR [Concomitant]
     Route: 048
  5. FUROSEMIDE [Concomitant]
     Route: 048
  6. LOSARTAN POTASSIUM [Concomitant]
  7. BISOPROLOL FUMARATE [Concomitant]
     Route: 048

REACTIONS (11)
  - HAEMATEMESIS [None]
  - HEPATIC ENZYME ABNORMAL [None]
  - SKIN HAEMORRHAGE [None]
  - SHOCK [None]
  - RENAL FAILURE ACUTE [None]
  - BLOOD URINE PRESENT [None]
  - MULTI-ORGAN FAILURE [None]
  - VOMITING [None]
  - DIARRHOEA [None]
  - DEHYDRATION [None]
  - MUCOSAL HAEMORRHAGE [None]
